FAERS Safety Report 18263571 (Version 3)
Quarter: 2021Q1

REPORT INFORMATION
  Report Type: Spontaneous
  Country: DE (occurrence: DE)
  Receive Date: 20200914
  Receipt Date: 20210202
  Transmission Date: 20210419
  Serious: Yes (Hospitalization, Other)
  Sender: FDA-Public Use
  Company Number: DE-IBIGEN-2020.09278

PATIENT
  Age: 18 Year
  Sex: Male
  Weight: 75 kg

DRUGS (6)
  1. DOXORUBICIN [Concomitant]
     Active Substance: DOXORUBICIN
     Indication: OSTEOSARCOMA
  2. CISPLATIN. [Concomitant]
     Active Substance: CISPLATIN
     Indication: OSTEOSARCOMA
  3. PIPERACILLIN AND TAZOBACTAM [Suspect]
     Active Substance: PIPERACILLIN SODIUM\TAZOBACTAM SODIUM
     Indication: URINARY TRACT INFECTION
     Dosage: PIPERACILLIN?TAZOBACTAM 4.5 G DOSE
     Route: 042
  4. PIPERACILLIN AND TAZOBACTAM [Suspect]
     Active Substance: PIPERACILLIN SODIUM\TAZOBACTAM SODIUM
     Indication: PYREXIA
     Dosage: PIPERACILLIN?TAZOBACTAM 4.5 G DOSE
     Route: 042
  5. CALCIUM FOLINATE [Concomitant]
     Active Substance: LEUCOVORIN CALCIUM
     Indication: OSTEOSARCOMA
     Dosage: INTENSIFIED CF RESCUE THERAPY (300 MG/M2 BSA EVERY 6 HOURS FOR TWO DAYS)
  6. METHOTREXATE. [Suspect]
     Active Substance: METHOTREXATE
     Indication: OSTEOSARCOMA
     Dosage: MTX (12,000 MG/M2 BSA (BODY SURFACE AREA)) COURSES IN WEEK 4 AND 5 OF EACH CYCLE WERE SCHEDULED (IN
     Route: 042

REACTIONS (8)
  - Neurotoxicity [Recovered/Resolved]
  - Extraocular muscle paresis [Recovered/Resolved]
  - Drug level increased [Recovered/Resolved]
  - Renal failure [Recovered/Resolved]
  - Nephropathy toxic [Recovered/Resolved]
  - Drug interaction [Recovered/Resolved]
  - Acute kidney injury [Recovered/Resolved]
  - Diplopia [Recovered/Resolved]
